FAERS Safety Report 21693930 (Version 3)
Quarter: 2023Q2

REPORT INFORMATION
  Report Type: Spontaneous
  Country: US (occurrence: US)
  Receive Date: 20221207
  Receipt Date: 20230404
  Transmission Date: 20230722
  Serious: Yes (Other)
  Sender: FDA-Public Use
  Company Number: US-BAYER-2022A167463

PATIENT
  Age: 16 Year
  Sex: Female

DRUGS (1)
  1. MIRENA [Suspect]
     Active Substance: LEVONORGESTREL
     Indication: Contraception
     Dosage: 20?G/DAY
     Route: 015
     Dates: start: 20220830, end: 20221123

REACTIONS (5)
  - Post procedural haemorrhage [None]
  - Post procedural discomfort [None]
  - Procedural pain [None]
  - Device dislocation [Recovered/Resolved]
  - Insomnia [None]

NARRATIVE: CASE EVENT DATE: 20220101
